FAERS Safety Report 9927445 (Version 1)
Quarter: 2014Q1

REPORT INFORMATION
  Report Type: Spontaneous
  Country: FR (occurrence: FR)
  Receive Date: 20140227
  Receipt Date: 20140227
  Transmission Date: 20141002
  Serious: Yes (Hospitalization)
  Sender: FDA-Public Use
  Company Number: FR-ABBVIE-14P-056-1205562-00

PATIENT
  Age: 17 Year
  Sex: Male

DRUGS (4)
  1. SEVORANE [Suspect]
     Indication: ANAESTHESIA
     Dates: start: 20131108, end: 20131108
  2. VANCOMYCINE MERCK [Suspect]
     Indication: ANTIBIOTIC PROPHYLAXIS
     Dosage: SINGLE INTAKE
     Route: 042
     Dates: start: 20131108, end: 20131108
  3. SUFENTANIL MERCK [Suspect]
     Indication: PRODUCT USED FOR UNKNOWN INDICATION
     Dates: start: 20131108, end: 20131108
  4. KETAMINE PANPHARMA [Suspect]
     Indication: PRODUCT USED FOR UNKNOWN INDICATION
     Route: 042
     Dates: start: 20131108, end: 20131108

REACTIONS (3)
  - Erythema [Recovered/Resolved]
  - Tachycardia [Recovered/Resolved]
  - Anaphylactic reaction [Recovered/Resolved]
